FAERS Safety Report 7033014-6 (Version None)
Quarter: 2010Q4

REPORT INFORMATION
  Report Type: 
  Country: None (occurrence: None)
  Receive Date: 20101007
  Receipt Date: 20101004
  Transmission Date: 20110411
  Serious: Yes (Hospitalization)
  Sender: FDA-Public Use
  Company Number: US-PFIZER INC-2010114236

PATIENT
  Sex: Female

DRUGS (1)
  1. LOMOTIL [Suspect]

REACTIONS (2)
  - ERYTHEMA [None]
  - LOSS OF CONSCIOUSNESS [None]
